FAERS Safety Report 8042391-9 (Version None)
Quarter: 2012Q1

REPORT INFORMATION
  Report Type: 
  Country: None (occurrence: None)
  Receive Date: 20120112
  Receipt Date: 20110816
  Transmission Date: 20120608
  Serious: Yes (Death, Other)
  Sender: FDA-Public Use
  Company Number: GB-ROCHE-GNE225181

PATIENT
  Sex: Female

DRUGS (14)
  1. MABTHERA [Suspect]
     Dosage: 375 MG/M2, 1/WEEK
     Dates: start: 20050401, end: 20050501
  2. IMMUNE GLOBULIN NOS [Concomitant]
     Indication: PRODUCT USED FOR UNKNOWN INDICATION
  3. PREDNISOLONE [Concomitant]
     Indication: SYSTEMIC LUPUS ERYTHEMATOSUS
     Dates: start: 20020101, end: 20030101
  4. AMLODIPINE [Concomitant]
     Indication: RAYNAUD'S PHENOMENON
     Dosage: 5 MG, QOD
     Route: 048
     Dates: start: 20020601
  5. PROBENECID [Concomitant]
     Indication: PRODUCT USED FOR UNKNOWN INDICATION
  6. CLARITIN [Concomitant]
     Indication: HYPERSENSITIVITY
     Dosage: 1 UNK, QOD
     Route: 048
     Dates: start: 20040615
  7. NUVELLE [Concomitant]
     Indication: PREMATURE MENOPAUSE
     Dosage: 1 UNK, QOD
     Dates: start: 19930601
  8. MABTHERA [Suspect]
     Dosage: 375 MG/M2, SINGLE
     Dates: start: 20051101
  9. LEVOTHYROXINE SODIUM [Concomitant]
     Indication: HYPOTHYROIDISM
     Dosage: 75 A?G, UNK
     Dates: start: 19900601
  10. LEVOMEPROMAZINE [Concomitant]
     Indication: PRODUCT USED FOR UNKNOWN INDICATION
     Route: 048
  11. HYDROXYCHLOROQUINE SULFATE [Concomitant]
     Indication: SYSTEMIC LUPUS ERYTHEMATOSUS
     Dosage: 300 MG, UNK
     Route: 048
     Dates: start: 20020601
  12. MABTHERA [Suspect]
     Indication: SYSTEMIC LUPUS ERYTHEMATOSUS
     Dosage: 375 MG/M2, 1/WEEK
     Route: 042
     Dates: start: 20020801, end: 20050901
  13. CALCIUM CARBONATE [Concomitant]
     Indication: OSTEOPOROSIS
     Dosage: 1 UNK, BID
     Route: 048
     Dates: start: 20030601
  14. FOLIC ACID [Concomitant]
     Indication: PRODUCT USED FOR UNKNOWN INDICATION
     Route: 048

REACTIONS (1)
  - PROGRESSIVE MULTIFOCAL LEUKOENCEPHALOPATHY [None]
